FAERS Safety Report 7057661-0 (Version None)
Quarter: 2010Q4

REPORT INFORMATION
  Report Type: 
  Country: None (occurrence: None)
  Receive Date: 20101022
  Receipt Date: 20101011
  Transmission Date: 20110411
  Serious: Yes (Hospitalization)
  Sender: FDA-Public Use
  Company Number: DE-PFIZER INC-2010128705

PATIENT
  Sex: Female

DRUGS (1)
  1. GENOTROPIN [Suspect]
     Dosage: UNK
     Dates: start: 20100901

REACTIONS (2)
  - HEADACHE [None]
  - VOMITING [None]
